FAERS Safety Report 6033747-4 (Version None)
Quarter: 2009Q1

REPORT INFORMATION
  Report Type: 
  Country: None (occurrence: None)
  Receive Date: 20090109
  Receipt Date: 20081229
  Transmission Date: 20090719
  Serious: Yes (Death, Hospitalization)
  Sender: FDA-Public Use
  Company Number: US-GILEAD-2008-0019358

PATIENT
  Sex: Male

DRUGS (7)
  1. TRUVADA [Suspect]
     Indication: HIV INFECTION
     Dates: start: 20030101
  2. PEPCID [Concomitant]
  3. NORVIR [Concomitant]
  4. REYATAZ [Concomitant]
     Dates: start: 20030901
  5. LANTUS [Concomitant]
     Dosage: 100 UNIT/ML AS DIRECTED
     Route: 058
  6. ACTOS [Concomitant]
  7. ALBUTEROL [Concomitant]
     Indication: ASTHMA
     Dosage: 1-2 PUFFS 4 TIMES DAILY AS NEEDED

REACTIONS (3)
  - HYPOTENSION [None]
  - LACTIC ACIDOSIS [None]
  - RENAL FAILURE ACUTE [None]
